FAERS Safety Report 6177753-8 (Version None)
Quarter: 2009Q2

REPORT INFORMATION
  Report Type: 
  Country: None (occurrence: None)
  Receive Date: 20090504
  Receipt Date: 20090420
  Transmission Date: 20091009
  Serious: Yes (Death, Other)
  Sender: FDA-Public Use
  Company Number: US-BAYER-200911156BCC

PATIENT
  Age: 55 Year
  Sex: Male
  Weight: 68 kg

DRUGS (1)
  1. ALKA-SELTZER EFFERVESCENT TABLETS ORIGINAL [Suspect]
     Indication: DYSPEPSIA
     Dosage: UNIT DOSE: 1 DF
     Dates: start: 19890101, end: 19890101

REACTIONS (1)
  - MYOCARDIAL INFARCTION [None]
